FAERS Safety Report 5373953-5 (Version None)
Quarter: 2007Q2

REPORT INFORMATION
  Report Type: 
  Country: None (occurrence: None)
  Receive Date: 20070627
  Receipt Date: 20070618
  Transmission Date: 20071010
  Serious: Yes (Other)
  Sender: FDA-Public Use
  Company Number: GXKR2007US05217

PATIENT
  Age: 34 Year
  Sex: Male

DRUGS (2)
  1. METHYLPREDNISOLONE [Suspect]
     Indication: MULTIPLE SCLEROSIS
     Dosage: SEE IMAGE
     Route: 042
  2. COPAXONE [Concomitant]

REACTIONS (2)
  - BIOPSY LIVER ABNORMAL [None]
  - HEPATIC NECROSIS [None]
